FAERS Safety Report 24041850 (Version 1)
Quarter: 2024Q3

REPORT INFORMATION
  Report Type: Report from Study
  Country: US (occurrence: US)
  Receive Date: 20240702
  Receipt Date: 20240702
  Transmission Date: 20241016
  Serious: Yes (Hospitalization)
  Sender: RECRO PHARMA
  Company Number: US-SOCIETAL CDMO GAINESVILLE, LLC-SOC-2024-000017

PATIENT
  Age: 43 Year
  Sex: Female

DRUGS (1)
  1. VERAPAMIL HYDROCHLORIDE [Suspect]
     Active Substance: VERAPAMIL HYDROCHLORIDE
     Indication: Product used for unknown indication
     Dosage: UNK
     Route: 065

REACTIONS (4)
  - Overdose [Unknown]
  - Distributive shock [Unknown]
  - Hypoxia [Unknown]
  - Hypotension [Unknown]
